FAERS Safety Report 12570907 (Version 1)
Quarter: 2016Q3

REPORT INFORMATION
  Report Type: Spontaneous
  Country: US (occurrence: US)
  Receive Date: 20160719
  Receipt Date: 20160719
  Transmission Date: 20161109
  Serious: No
  Sender: FDA-Public Use
  Company Number: US-AMGEN-USASP2016083693

PATIENT
  Age: 60 Year

DRUGS (2)
  1. CORLANOR [Suspect]
     Active Substance: IVABRADINE HYDROCHLORIDE
     Indication: ISCHAEMIA
     Dosage: 7.5 UNK, QD
     Route: 065
  2. CORLANOR [Suspect]
     Active Substance: IVABRADINE HYDROCHLORIDE
     Indication: HEART RATE INCREASED

REACTIONS (2)
  - Drug ineffective [Unknown]
  - Off label use [Unknown]
